FAERS Safety Report 9938644 (Version 3)
Quarter: 2014Q1

REPORT INFORMATION
  Report Type: Spontaneous
  Country: JP (occurrence: JP)
  Receive Date: 20140303
  Receipt Date: 20140326
  Transmission Date: 20141002
  Serious: Yes (Life-Threatening, Hospitalization)
  Sender: FDA-Public Use
  Company Number: JP-JNJFOC-20140216181

PATIENT
  Age: 65 Year
  Sex: Male

DRUGS (6)
  1. XARELTO [Suspect]
     Indication: CEREBROVASCULAR ACCIDENT PROPHYLAXIS
     Route: 048
     Dates: start: 20131125, end: 20140206
  2. XARELTO [Suspect]
     Indication: ATRIAL FIBRILLATION
     Route: 048
     Dates: start: 20131125, end: 20140206
  3. TAKEPRON [Concomitant]
     Route: 048
  4. LIVALO [Concomitant]
     Route: 048
  5. MAINTATE [Concomitant]
     Route: 048
  6. NESINA [Concomitant]
     Route: 048

REACTIONS (1)
  - Interstitial lung disease [Recovered/Resolved]
